FAERS Safety Report 18769704 (Version 2)
Quarter: 2021Q4

REPORT INFORMATION
  Report Type: Spontaneous
  Country: US (occurrence: US)
  Receive Date: 20210121
  Receipt Date: 20211224
  Transmission Date: 20220303
  Serious: Yes (Hospitalization, Other)
  Sender: FDA-Public Use
  Company Number: US-PFIZER INC-2019345129

PATIENT
  Age: 76 Year
  Sex: Female

DRUGS (2)
  1. LYRICA [Suspect]
     Active Substance: PREGABALIN
     Indication: Neuropathy peripheral
     Dosage: 75 MG, 2X/DAY
     Route: 048
  2. LYRICA [Suspect]
     Active Substance: PREGABALIN
     Indication: Neuralgia
     Dosage: 75 MG, 3X/DAY
     Route: 048

REACTIONS (6)
  - COVID-19 [Unknown]
  - Pneumonia [Unknown]
  - Bronchitis [Unknown]
  - Musculoskeletal pain [Unknown]
  - Ligament rupture [Unknown]
  - Buttock injury [Unknown]
